FAERS Safety Report 5819393-3 (Version None)
Quarter: 2008Q3

REPORT INFORMATION
  Report Type: 
  Country: None (occurrence: None)
  Receive Date: 20080723
  Receipt Date: 20080716
  Transmission Date: 20090109
  Serious: Yes (Life-Threatening)
  Sender: FDA-Public Use
  Company Number: FR-ASTRAZENECA-2008CG01075

PATIENT
  Age: 20684 Day
  Sex: Female

DRUGS (5)
  1. DIPRIVAN [Suspect]
     Indication: ANAESTHESIA
     Dates: start: 20080513, end: 20080513
  2. BLEU PATENTE V GUERBET [Suspect]
     Route: 058
     Dates: start: 20080513, end: 20080513
  3. CEFAZOLIN [Suspect]
     Dates: start: 20080513, end: 20080513
  4. MIDAZOLAM HCL [Suspect]
     Indication: ANAESTHESIA
     Dates: start: 20080513, end: 20080513
  5. SUFENTA [Suspect]
     Indication: ANAESTHESIA
     Dates: start: 20080513, end: 20080513

REACTIONS (1)
  - ANAPHYLACTIC SHOCK [None]
